FAERS Safety Report 13090931 (Version 1)
Quarter: 2017Q1

REPORT INFORMATION
  Report Type: Report from Study
  Country: JP (occurrence: JP)
  Receive Date: 20170106
  Receipt Date: 20170106
  Transmission Date: 20170428
  Serious: Yes (Hospitalization)
  Sender: FDA-Public Use
  Company Number: JP-CONCORDIA PHARMACEUTICALS INC.-E2B_00007959

PATIENT
  Age: 74 Year
  Sex: Female

DRUGS (18)
  1. SODIUM RABEPRAZOLE [Concomitant]
     Active Substance: RABEPRAZOLE SODIUM
  2. FEXOFENADINE HYDROCHRORIDE [Concomitant]
  3. TRAZODONE HYDROCHLORIDE. [Concomitant]
     Active Substance: TRAZODONE HYDROCHLORIDE
  4. ZONISAMIDE CAPSULE [Suspect]
     Active Substance: ZONISAMIDE
     Indication: PARKINSONISM
     Dosage: 25MG, 50MG, OR PLACEBO
     Route: 048
     Dates: start: 20160216, end: 20160511
  5. DONEPEZIL HYDROCHLORIDE. [Concomitant]
     Active Substance: DONEPEZIL HYDROCHLORIDE
  6. ASPIRIN. [Concomitant]
     Active Substance: ASPIRIN
  7. BENIDIPINE HYDROCHLORIDE [Concomitant]
     Active Substance: BENIDIPINE HYDROCHLORIDE
  8. BETAMETHASONE BUTYRATE PROPIONATE [Concomitant]
     Active Substance: BETAMETHASONE BUTYRATE PROPIONATE
  9. ZONISAMIDE CAPSULE [Suspect]
     Active Substance: ZONISAMIDE
     Indication: DEMENTIA WITH LEWY BODIES
     Route: 048
     Dates: start: 20160512, end: 20160706
  10. ZONISAMIDE CAPSULE [Suspect]
     Active Substance: ZONISAMIDE
     Route: 048
     Dates: start: 20160707
  11. LEVODOPA/CARBIDOPA HYDRATE [Concomitant]
  12. YOKUKANSAN [Concomitant]
     Active Substance: HERBALS
  13. SODIUM RISEDRONATE HYDRATE [Concomitant]
     Active Substance: RISEDRONATE SODIUM HEMI-PENTAHYDRATE
  14. OLOPATADINE HYDROCHLORIDE. [Concomitant]
     Active Substance: OLOPATADINE HYDROCHLORIDE
  15. PREDNISONE VALERATE ACETATE [Concomitant]
  16. EDIROL [Concomitant]
     Active Substance: ELDECALCITOL
  17. SALICYLIC ACID. [Concomitant]
     Active Substance: SALICYLIC ACID
  18. MAGNESIUM OXIDE. [Concomitant]
     Active Substance: MAGNESIUM OXIDE

REACTIONS (2)
  - Altered state of consciousness [Recovered/Resolved]
  - Spinal compression fracture [Recovered/Resolved]

NARRATIVE: CASE EVENT DATE: 20160328
